FAERS Safety Report 8624398-3 (Version None)
Quarter: 2012Q3

REPORT INFORMATION
  Report Type: 
  Country: None (occurrence: None)
  Receive Date: 20120827
  Receipt Date: 20120823
  Transmission Date: 20120928
  Serious: Yes (Death, Life-Threatening, Hospitalization, Other)
  Sender: FDA-Public Use
  Company Number: SZ-ASTRAZENECA-2012SE61372

PATIENT
  Age: 90 Year
  Sex: Male

DRUGS (6)
  1. DIGOXIN [Suspect]
     Route: 048
     Dates: start: 20120729, end: 20120809
  2. ASPIRIN [Concomitant]
     Route: 048
     Dates: start: 20120703, end: 20120726
  3. AMLODIPINE [Concomitant]
     Route: 048
     Dates: start: 20120703
  4. LANSOPRAZOLE [Suspect]
     Route: 048
     Dates: start: 20120703, end: 20120717
  5. SEROQUEL [Suspect]
     Route: 048
     Dates: start: 20120714, end: 20120716
  6. DIGOXIN [Suspect]
     Route: 048
     Dates: start: 20120703, end: 20120717

REACTIONS (10)
  - OXYGEN SATURATION DECREASED [None]
  - LOWER GASTROINTESTINAL HAEMORRHAGE [None]
  - JOINT INJURY [None]
  - GENERAL PHYSICAL HEALTH DETERIORATION [None]
  - DEATH [None]
  - PYREXIA [None]
  - AGRANULOCYTOSIS [None]
  - REFUSAL OF TREATMENT BY PATIENT [None]
  - HYPOPHAGIA [None]
  - MUTISM [None]
